FAERS Safety Report 7170548-8 (Version None)
Quarter: 2010Q4

REPORT INFORMATION
  Report Type: 
  Country: None (occurrence: None)
  Receive Date: 20101217
  Receipt Date: 20101203
  Transmission Date: 20110411
  Serious: Yes (Other)
  Sender: FDA-Public Use
  Company Number: US-AMGEN-USASP2010008191

PATIENT

DRUGS (2)
  1. PROCRIT [Suspect]
     Indication: RENAL FAILURE CHRONIC
     Dosage: 40000 IU, UNK
     Dates: start: 20100401, end: 20101201
  2. PROCRIT [Suspect]
     Dosage: 50000 IU, UNK
     Dates: start: 20101101, end: 20101201

REACTIONS (5)
  - FATIGUE [None]
  - HEADACHE [None]
  - HYPOGLYCAEMIA [None]
  - MYALGIA [None]
  - SCOTOMA [None]
